FAERS Safety Report 5730278-3 (Version None)
Quarter: 2008Q2

REPORT INFORMATION
  Report Type: 
  Country: None (occurrence: None)
  Receive Date: 20080505
  Receipt Date: 20080505
  Transmission Date: 20081010
  Serious: Yes (Other)
  Sender: FDA-Public Use
  Company Number: None

PATIENT
  Age: 2 Year
  Sex: Male
  Weight: 12.7007 kg

DRUGS (1)
  1. ZYRTEC ALLERGY [Suspect]
     Indication: SEASONAL ALLERGY
     Dosage: 1/2 TSP 1 TIME PER DAY PO
     Route: 048
     Dates: start: 20080501, end: 20080503

REACTIONS (9)
  - ABNORMAL BEHAVIOUR [None]
  - AGGRESSION [None]
  - COLD SWEAT [None]
  - CRYING [None]
  - EXOPHTHALMOS [None]
  - HYPERHIDROSIS [None]
  - MIDDLE INSOMNIA [None]
  - MOANING [None]
  - SCREAMING [None]
